FAERS Safety Report 7124783-5 (Version None)
Quarter: 2010Q4

REPORT INFORMATION
  Report Type: 
  Country: None (occurrence: None)
  Receive Date: 20101128
  Receipt Date: 20101128
  Transmission Date: 20110411
  Serious: Yes (Life-Threatening)
  Sender: FDA-Public Use
  Company Number: None

PATIENT
  Age: 42 Year
  Sex: Female
  Weight: 68.0396 kg

DRUGS (18)
  1. BUPROPION HCL [Suspect]
     Indication: DEPRESSION
     Dosage: 300 MG DAILY PO
     Route: 048
  2. BUPROPION HCL [Suspect]
     Indication: SMOKING CESSATION THERAPY
     Dosage: 300 MG DAILY PO
     Route: 048
  3. KEPPRA [Concomitant]
  4. PREDNISONE [Concomitant]
  5. XOPENEX [Concomitant]
  6. SINGULAIR [Concomitant]
  7. ISMN [Concomitant]
  8. MELOXICAM [Concomitant]
  9. ASPIRIN [Concomitant]
  10. CEFTRIAXONE [Concomitant]
  11. ENOXAPARIN SODIUM [Concomitant]
  12. FERROUS SULFATE [Concomitant]
  13. METOCLOPRAMIDE [Concomitant]
  14. MIRTAZAPINE [Concomitant]
  15. MOMETASONE FUROATE [Concomitant]
  16. POTASSIUM CHLORIDE [Concomitant]
  17. RAMIPRIL [Concomitant]
  18. SIMVASTATIN [Concomitant]

REACTIONS (3)
  - ANTICONVULSANT DRUG LEVEL BELOW THERAPEUTIC [None]
  - CONVULSION [None]
  - HYPOGLYCAEMIA [None]
